FAERS Safety Report 7246426-2 (Version None)
Quarter: 2011Q1

REPORT INFORMATION
  Report Type: 
  Country: None (occurrence: None)
  Receive Date: 20110126
  Receipt Date: 20110112
  Transmission Date: 20110831
  Serious: Yes (Other)
  Sender: FDA-Public Use
  Company Number: ES-ELI_LILLY_AND_COMPANY-ES201008004025

PATIENT
  Sex: Female
  Weight: 60 kg

DRUGS (7)
  1. ALPRAZOLAM [Concomitant]
     Indication: ANXIETY
     Dosage: 0.5 MG, 2/D
     Route: 048
  2. DACORTIN [Concomitant]
     Indication: SYSTEMIC LUPUS ERYTHEMATOSUS
     Dosage: 5 MG, DAILY (1/D)
     Route: 048
  3. TRANSTEC [Concomitant]
     Indication: PAIN
     Dosage: 1 D/F, 3/D
     Route: 062
  4. CITALOPRAM [Concomitant]
     Indication: DEPRESSION
     Dosage: 30 MG, DAILY (1/D)
     Route: 048
  5. DOLQUINE [Concomitant]
     Indication: SYSTEMIC LUPUS ERYTHEMATOSUS
     Dosage: 200 MG, DAILY (1/D)
     Route: 048
  6. FORTEO [Suspect]
     Indication: OSTEOPOROSIS
     Dosage: 20 UG, DAILY (1/D)
     Route: 058
     Dates: start: 20081007, end: 20100616
  7. LORAZEPAM [Concomitant]
     Indication: INSOMNIA
     Dosage: 1 G, DAILY (1/D)
     Route: 048

REACTIONS (7)
  - BLOOD CREATININE INCREASED [None]
  - FATIGUE [None]
  - VERTIGO [None]
  - SOMNOLENCE [None]
  - ASTHENIA [None]
  - DIZZINESS [None]
  - BLOOD PARATHYROID HORMONE INCREASED [None]
